FAERS Safety Report 6642371-1 (Version None)
Quarter: 2010Q1

REPORT INFORMATION
  Report Type: 
  Country: None (occurrence: None)
  Receive Date: 20100319
  Receipt Date: 20100309
  Transmission Date: 20100710
  Serious: Yes (Other)
  Sender: FDA-Public Use
  Company Number: VE-ROCHE-689964

PATIENT
  Sex: Female
  Weight: 83 kg

DRUGS (1)
  1. HERCEPTIN [Suspect]
     Indication: BREAST CANCER
     Dosage: FREQUENCY: CYCLIC
     Route: 042
     Dates: start: 20080501, end: 20100305

REACTIONS (1)
  - ULCER [None]
